FAERS Safety Report 25501203 (Version 1)
Quarter: 2025Q3

REPORT INFORMATION
  Report Type: Spontaneous
  Country: US (occurrence: US)
  Receive Date: 20250701
  Receipt Date: 20250701
  Transmission Date: 20251021
  Serious: No
  Sender: SANOFI AVENTIS
  Company Number: US-SA-2025SA183983

PATIENT
  Age: 72 Year
  Sex: Female
  Weight: 90.91 kg

DRUGS (1)
  1. DUPIXENT [Suspect]
     Active Substance: DUPILUMAB
     Indication: Asthma
     Dosage: 300 MG, QOW
     Route: 058
     Dates: start: 20250610, end: 202506

REACTIONS (10)
  - Depression [Unknown]
  - Ear pain [Unknown]
  - Facial pain [Unknown]
  - Productive cough [Unknown]
  - Otorrhoea [Unknown]
  - Visual impairment [Unknown]
  - Vomiting [Unknown]
  - Headache [Unknown]
  - Vision blurred [Unknown]
  - Drug ineffective [Unknown]

NARRATIVE: CASE EVENT DATE: 20250610
